FAERS Safety Report 8936450 (Version 1)
Quarter: 2012Q4

REPORT INFORMATION
  Report Type: 
  Country: GB (occurrence: GB)
  Receive Date: 20121130
  Receipt Date: 20121130
  Transmission Date: 20130627
  Serious: Yes (Hospitalization)
  Sender: FDA-Public Use
  Company Number: GB-PFIZER INC-2012296628

PATIENT
  Age: 54 Year
  Sex: Female
  Weight: 68 kg

DRUGS (6)
  1. GENOTROPIN [Suspect]
     Indication: GROWTH HORMONE DEFICIENCY
     Dosage: 0.47 mg, 1x/day, 7 injections/week
     Route: 058
     Dates: start: 20061004
  2. DESMOPRESSIN [Concomitant]
     Indication: ADH DECREASED
     Dosage: UNK
     Dates: start: 20031021
  3. HYDROCORTISONE [Concomitant]
     Indication: ACTH DECREASED
     Dosage: UNK
     Dates: start: 20031029
  4. THYROXINE [Concomitant]
     Indication: TSH DECREASED
     Dosage: UNK
     Dates: start: 20031202
  5. THYROXINE [Concomitant]
     Indication: PRIMARY HYPOTHYROIDISM
  6. CABERGOLINE [Concomitant]
     Indication: HYPERPROLACTINAEMIA
     Dosage: UNK
     Dates: start: 20031202

REACTIONS (1)
  - Tendon injury [Unknown]
